FAERS Safety Report 10041119 (Version 1)
Quarter: 2014Q1

REPORT INFORMATION
  Report Type: Spontaneous
  Country: US (occurrence: US)
  Receive Date: 20140327
  Receipt Date: 20140327
  Transmission Date: 20141002
  Serious: Yes (Hospitalization)
  Sender: FDA-Public Use
  Company Number: US-INCYTE CORPORATION-2014IN000697

PATIENT
  Age: 75 Year
  Sex: Female

DRUGS (4)
  1. JAKAFI [Suspect]
     Indication: MYELOFIBROSIS
     Dosage: 15 MG, BID
     Route: 065
     Dates: start: 2012
  2. VITAMIN B12                        /00056201/ [Concomitant]
  3. VITAMIN B6 [Concomitant]
  4. VITAMIN B1 [Concomitant]

REACTIONS (1)
  - Influenza [Unknown]
